FAERS Safety Report 10372639 (Version 2)
Quarter: 2014Q3

REPORT INFORMATION
  Report Type: Other
  Country: IT (occurrence: IT)
  Receive Date: 20140808
  Receipt Date: 20140808
  Transmission Date: 20150326
  Serious: Yes (Other)
  Sender: FDA-Public Use
  Company Number: IT-MYLAN-2014S1009627

PATIENT

DRUGS (1)
  1. OLANZAPINE. [Suspect]
     Active Substance: OLANZAPINE
     Indication: PRODUCT USED FOR UNKNOWN INDICATION
     Dosage: 10 MG,TOTAL
     Route: 048
     Dates: start: 20140306, end: 20140306

REACTIONS (2)
  - Psychomotor skills impaired [Recovering/Resolving]
  - Accidental exposure to product by child [Recovering/Resolving]

NARRATIVE: CASE EVENT DATE: 20140306
